FAERS Safety Report 7878774-7 (Version None)
Quarter: 2011Q4

REPORT INFORMATION
  Report Type: 
  Country: None (occurrence: None)
  Receive Date: 20111028
  Receipt Date: 20111012
  Transmission Date: 20120403
  Serious: Yes (Hospitalization)
  Sender: FDA-Public Use
  Company Number: THQ2011A06720

PATIENT
  Age: 68 Year
  Sex: Male

DRUGS (8)
  1. LOSARTAN [Concomitant]
  2. OMEPRAZOLE [Concomitant]
  3. AMLODIPINE [Concomitant]
  4. VILDAGLIPTIN [Concomitant]
  5. ACTOS [Suspect]
     Indication: TYPE 2 DIABETES MELLITUS
     Dosage: 30 MG (30 MG,1 IN 1 D) PER ORAL
     Route: 048
     Dates: start: 20081101, end: 20110815
  6. ATORVASTATIN [Concomitant]
  7. HYDROCHLOROTHIAZIDE [Concomitant]
  8. METFORMIN HCL [Concomitant]

REACTIONS (1)
  - BLADDER CANCER [None]
